FAERS Safety Report 8985197 (Version 2)
Quarter: 2013Q1

REPORT INFORMATION
  Report Type: Spontaneous
  Country: US (occurrence: US)
  Receive Date: 20121226
  Receipt Date: 20130218
  Transmission Date: 20140127
  Serious: No
  Sender: FDA-Public Use
  Company Number: US-PFIZER INC-2012326504

PATIENT
  Age: 54 Year
  Sex: Female
  Weight: 90.7 kg

DRUGS (6)
  1. PRISTIQ [Suspect]
     Indication: DEPRESSION
     Dosage: UNK, 1X/DAY
     Route: 048
     Dates: start: 20120905
  2. PRISTIQ [Suspect]
     Dosage: 50 MG, 1X/DAY
     Route: 048
     Dates: start: 201210
  3. ABILIFY [Concomitant]
     Dosage: UNK
  4. LAMOTRIGINE [Concomitant]
     Dosage: UNK
  5. TRAZODONE [Concomitant]
     Indication: SLEEP DISORDER
     Dosage: UNK, 1 HS PRN
     Dates: start: 20120322
  6. TRAZEPAM [Concomitant]
     Indication: SLEEP DISORDER
     Dosage: UNK, 1 HS
     Dates: start: 20120322

REACTIONS (3)
  - Lip dry [Recovered/Resolved]
  - Lip blister [Unknown]
  - Oral herpes [Unknown]
